FAERS Safety Report 7281712-1 (Version None)
Quarter: 2011Q1

REPORT INFORMATION
  Report Type: 
  Country: None (occurrence: None)
  Receive Date: 20110208
  Receipt Date: 20110131
  Transmission Date: 20110831
  Serious: Yes (Other)
  Sender: FDA-Public Use
  Company Number: BE-ASTRAZENECA-2011SE05333

PATIENT
  Age: 61 Year
  Sex: Male
  Weight: 72 kg

DRUGS (14)
  1. LAMBIPOL [Concomitant]
  2. TICLID [Concomitant]
  3. BELSAR [Concomitant]
  4. CO-BISOPROLOL [Concomitant]
     Dosage: 10/25 MG DAILY
  5. SEROQUEL [Suspect]
     Route: 048
     Dates: start: 20100601
  6. LIPANTHYL [Concomitant]
  7. OMIC [Concomitant]
     Indication: PROSTATISM
  8. SEROQUEL [Suspect]
     Route: 048
     Dates: start: 20100609
  9. ALDACTONE [Concomitant]
  10. SEROQUEL [Suspect]
     Indication: BIPOLAR DISORDER
     Route: 048
     Dates: start: 20100501
  11. ZYLORIC [Concomitant]
  12. METFORMAX [Concomitant]
     Dosage: 1 1/2, 850 MG TWO TIMES A DAY
  13. SIMVASTATIN [Concomitant]
  14. DEPAKENE [Suspect]
     Route: 065

REACTIONS (2)
  - ANAEMIA [None]
  - NEUTROPENIA [None]
